FAERS Safety Report 13447372 (Version 1)
Quarter: 2017Q2

REPORT INFORMATION
  Report Type: Spontaneous
  Country: CN (occurrence: CN)
  Receive Date: 20170417
  Receipt Date: 20170417
  Transmission Date: 20170830
  Serious: Yes (Hospitalization)
  Sender: FDA-Public Use
  Company Number: CN-VALIDUS PHARMACEUTICALS LLC-CN-2017VAL000525

PATIENT
  Age: 80 Year
  Sex: Male

DRUGS (1)
  1. BENAZEPRIL HYDROCHLORIDE. [Suspect]
     Active Substance: BENAZEPRIL HYDROCHLORIDE
     Indication: PRODUCT USED FOR UNKNOWN INDICATION
     Dosage: UNK
     Route: 065

REACTIONS (54)
  - Cerebral infarction [Unknown]
  - Acute myocardial infarction [Unknown]
  - Muscular weakness [Unknown]
  - Right ventricular failure [Unknown]
  - Blood creatine phosphokinase MB increased [Unknown]
  - Type 2 diabetes mellitus [Unknown]
  - Arteriosclerosis [Unknown]
  - Atrial fibrillation [Unknown]
  - Pulmonary embolism [Unknown]
  - Heart rate increased [Unknown]
  - Extensor plantar response [Unknown]
  - Pallor [Unknown]
  - Chest pain [Unknown]
  - Tachycardia [Unknown]
  - Troponin increased [Unknown]
  - Depressed level of consciousness [Unknown]
  - Wheezing [Recovered/Resolved]
  - Heart rate irregular [Unknown]
  - Brain hypoxia [Unknown]
  - Syncope [Unknown]
  - Seizure [Unknown]
  - Coma [Unknown]
  - Drug ineffective [Unknown]
  - Rales [Unknown]
  - Systolic dysfunction [Unknown]
  - Nausea [Unknown]
  - Musculoskeletal pain [Unknown]
  - Embolism arterial [Unknown]
  - Limb malformation [Unknown]
  - Bundle branch block right [Unknown]
  - Productive cough [Unknown]
  - Hypoacusis [Unknown]
  - Heart sounds abnormal [Unknown]
  - Circulatory collapse [Unknown]
  - Cold sweat [Unknown]
  - Dyspnoea [Unknown]
  - Anxiety [Unknown]
  - Neck pain [Unknown]
  - Cor pulmonale [Unknown]
  - Cardiac disorder [Unknown]
  - Pneumonia aspiration [Unknown]
  - Jugular vein occlusion [Unknown]
  - Atrioventricular dissociation [Unknown]
  - Tenderness [Unknown]
  - Atrophy [Unknown]
  - Haemoptysis [Unknown]
  - Abdominal pain upper [Unknown]
  - Lung infection [Unknown]
  - Cardiac failure [Unknown]
  - Hypertension [Unknown]
  - Cough [Unknown]
  - Orthopnoea [Unknown]
  - Oedema peripheral [Unknown]
  - Fear [Unknown]

NARRATIVE: CASE EVENT DATE: 20150812
